FAERS Safety Report 19241847 (Version 2)
Quarter: 2021Q2

REPORT INFORMATION
  Report Type: Spontaneous
  Country: US (occurrence: US)
  Receive Date: 20210511
  Receipt Date: 20210518
  Transmission Date: 20210717
  Serious: No
  Sender: FDA-Public Use
  Company Number: NVSC2021US102571

PATIENT
  Age: 52 Year
  Sex: Female

DRUGS (1)
  1. COSENTYX [Suspect]
     Active Substance: SECUKINUMAB
     Indication: PSORIASIS
     Dosage: 300 MG, QMO
     Route: 058
     Dates: start: 20210413

REACTIONS (7)
  - Paranasal sinus discomfort [Recovering/Resolving]
  - Ear pain [Recovering/Resolving]
  - Lymphadenopathy [Recovering/Resolving]
  - Arthralgia [Recovering/Resolving]
  - Sinus disorder [Recovering/Resolving]
  - Nausea [Recovering/Resolving]
  - Fatigue [Recovering/Resolving]

NARRATIVE: CASE EVENT DATE: 20210413
